FAERS Safety Report 15302586 (Version 1)
Quarter: 2018Q3

REPORT INFORMATION
  Report Type: Report from Study
  Country: GB (occurrence: GB)
  Receive Date: 20180821
  Receipt Date: 20180821
  Transmission Date: 20181010
  Serious: Yes (Hospitalization, Other)
  Sender: FDA-Public Use
  Company Number: PHHY2018GB051856

PATIENT
  Sex: Male

DRUGS (1)
  1. COSENTYX [Suspect]
     Active Substance: SECUKINUMAB
     Indication: ANKYLOSING SPONDYLITIS
     Dosage: 150 MG, QMO
     Route: 058
     Dates: start: 20180122, end: 201807

REACTIONS (3)
  - Haemorrhoidal haemorrhage [Unknown]
  - Rectal haemorrhage [Unknown]
  - Diabetic complication [Unknown]

NARRATIVE: CASE EVENT DATE: 2018
